FAERS Safety Report 6089075-4 (Version None)
Quarter: 2009Q1

REPORT INFORMATION
  Report Type: 
  Country: None (occurrence: None)
  Receive Date: 20090224
  Receipt Date: 20090223
  Transmission Date: 20090719
  Serious: Yes (Other)
  Sender: FDA-Public Use
  Company Number: D0060619A

PATIENT
  Age: 57 Year
  Sex: Male

DRUGS (2)
  1. COMBIVIR [Suspect]
     Dosage: 450MG SEE DOSAGE TEXT
     Route: 048
     Dates: start: 20090220, end: 20090220
  2. LOPINAVIR [Suspect]
     Route: 048
     Dates: start: 20090220, end: 20090220

REACTIONS (2)
  - INTENTIONAL OVERDOSE [None]
  - SUICIDE ATTEMPT [None]
